FAERS Safety Report 9438967 (Version 1)
Quarter: 2013Q3

REPORT INFORMATION
  Report Type: Spontaneous
  Country: DE (occurrence: DE)
  Receive Date: 20130802
  Receipt Date: 20130802
  Transmission Date: 20140515
  Serious: Yes (Hospitalization)
  Sender: FDA-Public Use
  Company Number: GXKR2013DE002543

PATIENT
  Sex: Female

DRUGS (1)
  1. SIMVAHEXAL [Suspect]
     Indication: HYPERLIPIDAEMIA
     Dosage: UNK UKN, UNK
     Route: 048
     Dates: start: 20130717

REACTIONS (4)
  - Pyelonephritis [Recovered/Resolved]
  - Blood urine present [Recovered/Resolved]
  - Pyrexia [Recovered/Resolved]
  - Malaise [Recovered/Resolved]
